FAERS Safety Report 16862018 (Version 3)
Quarter: 2020Q3

REPORT INFORMATION
  Report Type: Report from Study
  Country: US (occurrence: US)
  Receive Date: 20190927
  Receipt Date: 20200908
  Transmission Date: 20201102
  Serious: Yes (Hospitalization)
  Sender: FDA-Public Use
  Company Number: PHHO2019US002338

PATIENT
  Age: 42 Year
  Sex: Female
  Weight: 98.3 kg

DRUGS (4)
  1. BLINDED BAF312 [Suspect]
     Active Substance: SIPONIMOD
     Indication: CEREBROVASCULAR ACCIDENT
     Dosage: CODE NOT BROKEN
     Route: 048
     Dates: start: 20190117, end: 20190131
  2. BLINDED BAF312 [Suspect]
     Active Substance: SIPONIMOD
     Indication: CEREBROVASCULAR ACCIDENT
     Dosage: CODE NOT BROKEN
     Route: 048
     Dates: start: 20190117, end: 20190131
  3. BLINDED NO TREATMENT RECEIVED [Suspect]
     Active Substance: INVESTIGATIONAL PRODUCT
     Indication: CEREBROVASCULAR ACCIDENT
     Dosage: CODE NOT BROKEN
     Route: 048
     Dates: start: 20190117, end: 20190131
  4. PLACEBO [Suspect]
     Active Substance: UNSPECIFIED INGREDIENT
     Indication: CEREBROVASCULAR ACCIDENT
     Dosage: CODE NOT BROKEN
     Route: 048
     Dates: start: 20190117, end: 20190131

REACTIONS (2)
  - Pulmonary embolism [Recovering/Resolving]
  - Deep vein thrombosis [Recovering/Resolving]

NARRATIVE: CASE EVENT DATE: 20190218
